FAERS Safety Report 9526698 (Version 2)
Quarter: 2013Q3

REPORT INFORMATION
  Report Type: Spontaneous
  Country: US (occurrence: US)
  Receive Date: 20130916
  Receipt Date: 20130916
  Transmission Date: 20140515
  Serious: No
  Sender: FDA-Public Use
  Company Number: US-PURDUE-USA-2012-0086715

PATIENT
  Sex: Female

DRUGS (1)
  1. INTERMEZZO [Suspect]
     Indication: INSOMNIA
     Dosage: 3.5 MG, UNK
     Route: 060

REACTIONS (4)
  - Incorrect dose administered [Unknown]
  - Middle insomnia [Unknown]
  - Product taste abnormal [Unknown]
  - Inappropriate schedule of drug administration [Unknown]
